FAERS Safety Report 8258373 (Version 2)
Quarter: 2013Q2

REPORT INFORMATION
  Report Type: Spontaneous
  Country: US (occurrence: None)
  Receive Date: 20111108
  Receipt Date: 20121218
  Transmission Date: 20140414
  Serious: Yes (Other)
  Sender: FDA-Public Use
  Company Number: PHHY2011US42068

PATIENT
  Age: 81 Year
  Sex: Male

DRUGS (9)
  1. ZOMETA [Suspect]
     Indication: PROSTATE CANCER METASTATIC
     Dosage: 4 MG, EVERY 3 MONTHS
     Dates: start: 20110512
  2. LUPRON (LEUPRORELIN ACETATE) INJECTION [Concomitant]
  3. TRIAMTERENE (TRIAMTERENE) [Concomitant]
  4. ASPIRIN (ACETYLSALICYLIC ACID) [Concomitant]
  5. METOPROLOL TARTRATE [Concomitant]
  6. AMLODIPINE [Concomitant]
  7. BICALUTAMIDE [Concomitant]
  8. ZOCOR [Concomitant]
  9. TIMOLOL MALEATE [Concomitant]

REACTIONS (7)
  - WEIGHT DECREASED [None]
  - DECREASED APPETITE [None]
  - BACK PAIN [None]
  - INFLUENZA [None]
  - NAUSEA [None]
  - PAIN [None]
  - ASTHENIA [None]
